FAERS Safety Report 19100194 (Version 1)
Quarter: 2021Q2

REPORT INFORMATION
  Report Type: Spontaneous
  Country: DE (occurrence: DE)
  Receive Date: 20210407
  Receipt Date: 20210407
  Transmission Date: 20210717
  Serious: Yes (Life-Threatening, Hospitalization, Disabling)
  Sender: FDA-Public Use
  Company Number: DE-ROCHE-2801293

PATIENT
  Age: 59 Year
  Sex: Female
  Weight: 82 kg

DRUGS (3)
  1. POLIVY [Suspect]
     Active Substance: POLATUZUMAB VEDOTIN-PIIQ
     Indication: PRODUCT USED FOR UNKNOWN INDICATION
     Route: 065
     Dates: start: 20200306, end: 20200612
  2. TRUXIMA [Concomitant]
     Active Substance: RITUXIMAB-ABBS
     Dates: start: 20200305, end: 20200611
  3. BENDAMUSTINE [Suspect]
     Active Substance: BENDAMUSTINE
     Indication: PRODUCT USED FOR UNKNOWN INDICATION
     Route: 065
     Dates: start: 20200306, end: 20200613

REACTIONS (3)
  - Atrioventricular block [Unknown]
  - Subclavian vein stenosis [Unknown]
  - Syncope [Unknown]

NARRATIVE: CASE EVENT DATE: 202006
